FAERS Safety Report 6849755-7 (Version None)
Quarter: 2010Q3

REPORT INFORMATION
  Report Type: 
  Country: None (occurrence: None)
  Receive Date: 20100716
  Receipt Date: 20071008
  Transmission Date: 20110219
  Serious: No
  Sender: FDA-Public Use
  Company Number: US-PFIZER INC-2007084295

PATIENT
  Sex: Male
  Weight: 95.5 kg

DRUGS (5)
  1. CHANTIX [Suspect]
     Indication: SMOKING CESSATION THERAPY
     Route: 048
  2. ANTIHYPERTENSIVES [Concomitant]
  3. PLAVIX [Concomitant]
  4. LASIX [Concomitant]
  5. SIMVASTATIN [Concomitant]

REACTIONS (2)
  - POOR QUALITY SLEEP [None]
  - STRESS [None]
